FAERS Safety Report 7464807-9 (Version None)
Quarter: 2011Q2

REPORT INFORMATION
  Report Type: 
  Country: None (occurrence: None)
  Receive Date: 20110509
  Receipt Date: 20110428
  Transmission Date: 20111010
  Serious: Yes (Other)
  Sender: FDA-Public Use
  Company Number: US-US-EMD SERONO, INC.-7018941

PATIENT
  Sex: Female

DRUGS (2)
  1. REBIF [Suspect]
     Indication: MULTIPLE SCLEROSIS
     Route: 058
     Dates: start: 20100505
  2. SLEEPING PILL [Suspect]
     Dates: end: 20110101

REACTIONS (10)
  - SENSORY DISTURBANCE [None]
  - ASTHENIA [None]
  - SYNCOPE [None]
  - STRESS [None]
  - DYSARTHRIA [None]
  - HEAD INJURY [None]
  - INJECTION SITE ERYTHEMA [None]
  - CONSTIPATION [None]
  - UPPER RESPIRATORY TRACT INFECTION [None]
  - PHYSICAL ASSAULT [None]
